FAERS Safety Report 20098986 (Version 4)
Quarter: 2022Q3

REPORT INFORMATION
  Report Type: Spontaneous
  Country: JP (occurrence: JP)
  Receive Date: 20211122
  Receipt Date: 20220930
  Transmission Date: 20221027
  Serious: Yes (Death, Life-Threatening, Hospitalization, Other)
  Sender: FDA-Public Use
  Company Number: JP-PFIZER INC-202101568618

PATIENT
  Age: 62 Year
  Sex: Female
  Weight: 60.7 kg

DRUGS (32)
  1. IDAMYCIN [Suspect]
     Active Substance: IDARUBICIN HYDROCHLORIDE
     Indication: Acute leukaemia
     Dosage: 12 MG, 1X/DAY
     Route: 042
     Dates: start: 20211028, end: 20211028
  2. IDAMYCIN [Suspect]
     Active Substance: IDARUBICIN HYDROCHLORIDE
     Dosage: UNK, CYCLIC (DAY 3-5, REMISSION MAINTENANCE THERAPY)
     Route: 037
  3. METHOTREXATE SODIUM [Suspect]
     Active Substance: METHOTREXATE SODIUM
     Indication: Acute promyelocytic leukaemia
     Dosage: 15 MG, 1X/DAY
     Route: 037
     Dates: start: 20211026, end: 20211026
  4. METHOTREXATE SODIUM [Suspect]
     Active Substance: METHOTREXATE SODIUM
     Dosage: UNK, CYCLIC (DAY 1, REMISSION MAINTENANCE THERAPY)
     Route: 037
  5. MEROPENEM [Suspect]
     Active Substance: MEROPENEM
     Dosage: UNK
     Route: 042
  6. LOXOPROFEN [Suspect]
     Active Substance: LOXOPROFEN
     Dosage: UNK
     Route: 048
  7. CEFEPIME [Suspect]
     Active Substance: CEFEPIME HYDROCHLORIDE
     Dosage: UNK
  8. CYTARABINE [Concomitant]
     Active Substance: CYTARABINE
     Indication: Acute promyelocytic leukaemia
     Dosage: 40 MG
     Dates: start: 20211026, end: 20211026
  9. CYTARABINE [Concomitant]
     Active Substance: CYTARABINE
     Dosage: 160 MG, 1X/DAY
     Route: 042
     Dates: start: 20211028, end: 20211030
  10. CYTARABINE [Concomitant]
     Active Substance: CYTARABINE
     Dosage: UNK, CYCLIC (DAY 1, REMISSION MAINTENANCE THERAPY)
     Route: 037
  11. CYTARABINE [Concomitant]
     Active Substance: CYTARABINE
     Dosage: UNK, CYCLIC (DAY 3-5, REMISSION MAINTENANCE THERAPY)
     Route: 037
  12. CYTARABINE [Concomitant]
     Active Substance: CYTARABINE
     Dosage: UNK, CYCLIC (DAY 6-7, REMISSION MAINTENANCE THERAPY)
     Route: 042
  13. PREDNISOLONE [Concomitant]
     Active Substance: PREDNISOLONE
     Dosage: 10 MG
     Route: 037
     Dates: start: 20211026, end: 20211026
  14. PREDNISOLONE [Concomitant]
     Active Substance: PREDNISOLONE
     Dosage: UNK, CYCLIC (DAY 1, REMISSION MAINTENANCE THERAPY)
     Route: 037
  15. GRANISETRON [Concomitant]
     Active Substance: GRANISETRON
     Dosage: UNK
     Dates: start: 20211028, end: 20211030
  16. CLOPIDOGREL BISULFATE [Concomitant]
     Active Substance: CLOPIDOGREL BISULFATE
     Dosage: UNK
  17. AMLODIPINE [Concomitant]
     Active Substance: AMLODIPINE BESYLATE
     Dosage: UNK
  18. AMITIZA [Concomitant]
     Active Substance: LUBIPROSTONE
     Dosage: UNK
  19. SENNOSIDE SAWAI [Concomitant]
     Dosage: UNK
  20. LANSOPRAZOLE [Concomitant]
     Active Substance: LANSOPRAZOLE
     Dosage: UNK
  21. HERBALS [Concomitant]
     Active Substance: HERBALS
     Dosage: UNK
  22. LANTHANUM CARBONATE [Concomitant]
     Active Substance: LANTHANUM CARBONATE
     Dosage: UNK
  23. AZILSARTAN KAMEDOXOMIL [Concomitant]
     Active Substance: AZILSARTAN KAMEDOXOMIL
     Dosage: UNK
  24. LEVOFLOXACIN [Concomitant]
     Active Substance: LEVOFLOXACIN
     Dosage: UNK
  25. LANSOPRAZOLE [Concomitant]
     Active Substance: LANSOPRAZOLE
     Dosage: 60 MG
     Route: 042
  26. FLURBIPROFEN AXETIL [Concomitant]
     Active Substance: FLURBIPROFEN AXETIL
     Dosage: UNK
     Route: 042
  27. ACETAMINOPHEN [Concomitant]
     Active Substance: ACETAMINOPHEN
     Dosage: UNK
  28. DEXTROSE\SODIUM CHLORIDE\SODIUM LACTATE [Concomitant]
     Active Substance: DEXTROSE\SODIUM CHLORIDE\SODIUM LACTATE
     Dosage: UNK
  29. VITAMEDIN [CYANOCOBALAMIN;PYRIDOXINE HYDROCHLORIDE;THIAMINE HYDROCHLOR [Concomitant]
     Dosage: UNK
  30. FAMOTIDINE [Concomitant]
     Active Substance: FAMOTIDINE
     Dosage: UNK
  31. POLARAMINE [Concomitant]
     Active Substance: DEXCHLORPHENIRAMINE MALEATE
     Dosage: UNK
  32. HYDROCORTISONE SODIUM SUCCINATE [Concomitant]
     Active Substance: HYDROCORTISONE SODIUM SUCCINATE
     Dosage: UNK

REACTIONS (12)
  - Toxic epidermal necrolysis [Fatal]
  - Septic shock [Fatal]
  - Stevens-Johnson syndrome [Fatal]
  - Agranulocytosis [Not Recovered/Not Resolved]
  - Pancytopenia [Unknown]
  - Feeling abnormal [Unknown]
  - Vomiting [Unknown]
  - Malaise [Unknown]
  - Head discomfort [Unknown]
  - Back pain [Recovering/Resolving]
  - Pyrexia [Unknown]
  - Decreased appetite [Unknown]

NARRATIVE: CASE EVENT DATE: 20211026
